FAERS Safety Report 18020656 (Version 1)
Quarter: 2020Q3

REPORT INFORMATION
  Report Type: Spontaneous
  Country: IT (occurrence: IT)
  Receive Date: 20200714
  Receipt Date: 20200714
  Transmission Date: 20201103
  Serious: Yes (Hospitalization, Other)
  Sender: FDA-Public Use
  Company Number: IT-PFIZER INC-2020267422

PATIENT
  Age: 58 Year
  Sex: Female
  Weight: 62 kg

DRUGS (2)
  1. FULVESTRANT. [Concomitant]
     Active Substance: FULVESTRANT
     Indication: BREAST CANCER FEMALE
     Dosage: 500 MG
     Route: 030
  2. PALBOCICLIB [Suspect]
     Active Substance: PALBOCICLIB
     Indication: BREAST CANCER FEMALE
     Dosage: 100 MG, 1X/DAY
     Route: 048
     Dates: start: 20200205, end: 20200508

REACTIONS (5)
  - Hypoxia [Recovered/Resolved]
  - Pyrexia [Recovered/Resolved]
  - Influenza [Unknown]
  - Lymphopenia [Recovered/Resolved]
  - Pneumonitis [Recovered/Resolved]

NARRATIVE: CASE EVENT DATE: 20200508
